FAERS Safety Report 23320879 (Version 1)
Quarter: 2023Q4

REPORT INFORMATION
  Report Type: Spontaneous
  Country: US (occurrence: US)
  Receive Date: 20231220
  Receipt Date: 20231220
  Transmission Date: 20240110
  Serious: Yes (Death)
  Sender: FDA-Public Use
  Company Number: US-AMNEAL PHARMACEUTICALS-2023-AMRX-04316

PATIENT
  Sex: Male

DRUGS (2)
  1. RYTARY [Suspect]
     Active Substance: CARBIDOPA\LEVODOPA
     Indication: Product used for unknown indication
     Dosage: 48. 75-195 MG, TAKE 7 CAPSULES EVERY DAY AND FOR 61.25-245 MG, TAKE 5 CAPSULES EVERY DAY
     Route: 048
  2. RYTARY [Suspect]
     Active Substance: CARBIDOPA\LEVODOPA
     Dosage: NOW PATIENT WOULD TAKE RYTARY 48-75-195 MG, TAKE 6 CAPSULES DAILY AND FOR RYTARY 61.25-245 MG, TAKE
     Route: 048
     Dates: start: 20230808

REACTIONS (1)
  - Adverse event [Fatal]
